FAERS Safety Report 17560490 (Version 1)
Quarter: 2020Q1

REPORT INFORMATION
  Report Type: Spontaneous
  Country: AS (occurrence: AS)
  Receive Date: 20200312
  Receipt Date: 20200312
  Transmission Date: 20200409
  Serious: Yes (Life-Threatening)
  Sender: FDA-Public Use
  Company Number: None

PATIENT
  Age: 34 Year
  Sex: Male

DRUGS (2)
  1. PREDNISONE (PREDNISONE 1MG TAB) [Suspect]
     Active Substance: PREDNISONE
     Route: 048
     Dates: start: 20180320, end: 20180419
  2. PREDNISONE (PREDNISONE 5MG TAB) [Suspect]
     Active Substance: PREDNISONE
     Indication: PAIN
     Route: 048
     Dates: start: 20180320, end: 20180419

REACTIONS (1)
  - Anaphylactic reaction [None]

NARRATIVE: CASE EVENT DATE: 20180420
